FAERS Safety Report 7705457-6 (Version None)
Quarter: 2011Q3

REPORT INFORMATION
  Report Type: 
  Country: None (occurrence: None)
  Receive Date: 20110823
  Receipt Date: 20110823
  Transmission Date: 20111222
  Serious: No
  Sender: FDA-Public Use
  Company Number: None

PATIENT
  Age: 46 Year
  Weight: 118.8424 kg

DRUGS (4)
  1. LISINOPRIL [Concomitant]
  2. CRESTOR [Concomitant]
  3. PRASUGROL 10MG ELI LILLY [Suspect]
     Indication: MYOCARDIAL INFARCTION
     Dosage: 10MG ONCE DAILY PO
     Route: 048
     Dates: start: 20110502, end: 20110811
  4. ATENOLOL [Concomitant]

REACTIONS (1)
  - DIZZINESS [None]
